FAERS Safety Report 17651232 (Version 2)
Quarter: 2020Q3

REPORT INFORMATION
  Report Type: Report from Study
  Country: None (occurrence: US)
  Receive Date: 20200408
  Receipt Date: 20200717
  Transmission Date: 20201102
  Serious: No
  Sender: FDA-Public Use
  Company Number: US-ABBVIE-20K-163-3297410-00

PATIENT
  Sex: Female

DRUGS (2)
  1. HUMIRA [Suspect]
     Active Substance: ADALIMUMAB
     Indication: CROHN^S DISEASE
  2. HUMIRA [Suspect]
     Active Substance: ADALIMUMAB
     Indication: PSORIATIC ARTHROPATHY
     Route: 058
     Dates: start: 201907

REACTIONS (8)
  - Mobility decreased [Unknown]
  - Arthralgia [Not Recovered/Not Resolved]
  - Pain [Unknown]
  - Gait disturbance [Unknown]
  - Condition aggravated [Unknown]
  - Back pain [Not Recovered/Not Resolved]
  - Anxiety [Unknown]
  - Sciatica [Unknown]
